FAERS Safety Report 8882306 (Version 2)
Quarter: 2013Q3

REPORT INFORMATION
  Report Type: Spontaneous
  Country: FR (occurrence: FR)
  Receive Date: 20121102
  Receipt Date: 20130730
  Transmission Date: 20140515
  Serious: Yes (Hospitalization)
  Sender: FDA-Public Use
  Company Number: FR-009507513-1210FRA013145

PATIENT
  Age: 81 Year
  Sex: Female
  Weight: 60 kg

DRUGS (2)
  1. CELESTENE 4MG/1ML [Suspect]
     Indication: PRODUCT USED FOR UNKNOWN INDICATION
  2. KARDEGIC [Concomitant]
     Indication: PRODUCT USED FOR UNKNOWN INDICATION

REACTIONS (2)
  - Tendon injury [Recovered/Resolved with Sequelae]
  - Injury associated with device [Recovered/Resolved with Sequelae]
